FAERS Safety Report 7020394-0 (Version None)
Quarter: 2010Q3

REPORT INFORMATION
  Report Type: 
  Country: None (occurrence: None)
  Receive Date: 20100929
  Receipt Date: 20100924
  Transmission Date: 20110219
  Serious: Yes (Other)
  Sender: FDA-Public Use
  Company Number: US-TYCO HEALTHCARE/MALLINCKRODT-T201000745

PATIENT
  Age: 16 Day
  Sex: Male

DRUGS (11)
  1. OPTIRAY 350 [Suspect]
     Indication: CATHETERISATION CARDIAC
     Dosage: UNK
     Route: 042
  2. PANCURONIUM [Concomitant]
     Indication: CATHETERISATION CARDIAC
     Dosage: UNK
  3. AMPICILLIN SODIUM [Concomitant]
     Indication: CATHETERISATION CARDIAC
     Dosage: UNK
  4. CLINDAMYCIN [Concomitant]
     Indication: CATHETERISATION CARDIAC
     Dosage: UNK
  5. CEFOTAXIME SODIUM [Concomitant]
     Indication: CATHETERISATION CARDIAC
     Dosage: UNK
  6. FUROSEMIDE [Concomitant]
     Indication: CATHETERISATION CARDIAC
     Dosage: UNK
  7. FENTANYL [Concomitant]
     Indication: CATHETERISATION CARDIAC
     Dosage: UNK
  8. BICARBONATE [Concomitant]
     Indication: CATHETERISATION CARDIAC
     Dosage: UNK
  9. DOPAMINE [Concomitant]
     Indication: CATHETERISATION CARDIAC
     Dosage: UNK
  10. VANCOMYCIN [Concomitant]
     Indication: CATHETERISATION CARDIAC
     Dosage: UNK
  11. EPINEPHRINE [Concomitant]
     Indication: CATHETERISATION CARDIAC
     Dosage: UNK

REACTIONS (1)
  - DERMATITIS EXFOLIATIVE [None]
